FAERS Safety Report 9749885 (Version 1)
Quarter: 2013Q4

REPORT INFORMATION
  Report Type: Spontaneous
  Country: DE (occurrence: DE)
  Receive Date: 20131212
  Receipt Date: 20131212
  Transmission Date: 20140711
  Serious: Yes (Hospitalization, Other)
  Sender: FDA-Public Use
  Company Number: DE-TEVA-449391GER

PATIENT
  Age: 52 Year
  Sex: Male

DRUGS (1)
  1. COPAXONE [Suspect]
     Dates: start: 20120913

REACTIONS (2)
  - Diverticulitis [Recovered/Resolved]
  - Abdominal pain lower [Recovered/Resolved]
